FAERS Safety Report 23609067 (Version 3)
Quarter: 2024Q2

REPORT INFORMATION
  Report Type: Spontaneous
  Country: US (occurrence: US)
  Receive Date: 20240308
  Receipt Date: 20240405
  Transmission Date: 20240716
  Serious: Yes (Death, Hospitalization, Other)
  Sender: FDA-Public Use
  Company Number: US-ABBVIE-5670764

PATIENT
  Age: 53 Year
  Sex: Male
  Weight: 76 kg

DRUGS (21)
  1. RINVOQ [Suspect]
     Active Substance: UPADACITINIB
     Indication: Ankylosing spondylitis
     Route: 048
     Dates: start: 20230725, end: 20240301
  2. DICLOFENAC [Concomitant]
     Active Substance: DICLOFENAC
     Indication: Product used for unknown indication
     Dosage: (DICLOFENAC 1% TOPICAL GEL)
     Route: 061
  3. SUCRALFATE [Concomitant]
     Active Substance: SUCRALFATE
     Indication: Product used for unknown indication
     Dosage: (SUCRALFATE 1 G ORAL TABLET)
     Route: 048
  4. LISINOPRIL [Concomitant]
     Active Substance: LISINOPRIL
     Indication: Product used for unknown indication
     Dosage: (LISINOPRIL 20 MG ORAL TABLET)
     Route: 048
  5. ESCITALOPRAM [Concomitant]
     Active Substance: ESCITALOPRAM OXALATE
     Indication: Product used for unknown indication
     Dosage: (ESCITALOPRAM 20 MG ORAL TABLET)
     Route: 048
  6. ROSUVASTATIN [Concomitant]
     Active Substance: ROSUVASTATIN
     Indication: Product used for unknown indication
     Dosage: (ROSUVASTATIN 20 MG ORAL TABLET)
     Route: 048
  7. PANTOPRAZOLE [Concomitant]
     Active Substance: PANTOPRAZOLE
     Indication: Product used for unknown indication
     Dosage: (PANTOPRAZOLE 40 MG ORAL DELAYED RELEASE TABLET)
     Route: 048
  8. ALBUTEROL [Concomitant]
     Active Substance: ALBUTEROL
     Indication: Product used for unknown indication
     Dosage: (VENTOLIN HFA 90 MCG/INH INHALATION AEROSOL)
  9. FOLIC ACID [Concomitant]
     Active Substance: FOLIC ACID
     Indication: Product used for unknown indication
     Dosage: (FOLIC ACID 1 MG ORAL TABLET)
     Route: 048
  10. BUSPIRONE [Concomitant]
     Active Substance: BUSPIRONE HYDROCHLORIDE
     Indication: Product used for unknown indication
     Dosage: (BUSPIRONE 5 MG ORAL TABLET)
     Route: 048
  11. METHOTREXATE [Concomitant]
     Active Substance: METHOTREXATE
     Indication: Product used for unknown indication
     Dosage: (METHOTREXATE 2.5 MG ORAL TABLET)
     Route: 048
  12. ONDANSETRON [Concomitant]
     Active Substance: ONDANSETRON
     Indication: Product used for unknown indication
     Dosage: (ONDANSETRON 8 MG ORAL TABLET)
     Route: 048
  13. PREDNISONE [Concomitant]
     Active Substance: PREDNISONE
     Indication: Product used for unknown indication
     Dosage: (PREDNISONE 20 MG ORAL TABLET)
     Route: 048
  14. ISOTRETINOIN [Concomitant]
     Active Substance: ISOTRETINOIN
     Indication: Product used for unknown indication
     Dosage: (CLARAVIS 40 MG ORAL CAPSULE)
     Route: 048
  15. BACLOFEN [Concomitant]
     Active Substance: BACLOFEN
     Indication: Product used for unknown indication
     Dosage: (BACLOFEN 10 MG ORAL TABLET)
     Route: 048
  16. TERAZOSIN [Concomitant]
     Active Substance: TERAZOSIN HYDROCHLORIDE
     Indication: Product used for unknown indication
     Dosage: (TERAZOSIN 2 MG ORAL CAPSULE)
     Route: 048
  17. DULOXETINE [Concomitant]
     Active Substance: DULOXETINE
     Indication: Product used for unknown indication
     Dosage: (DULOXETINE 30 MG ORAL DELAYED RELEASE CAPSULE)
     Route: 048
  18. FUROSEMIDE [Concomitant]
     Active Substance: FUROSEMIDE
     Indication: Product used for unknown indication
     Dosage: (FUROSEMIDE 40 MG ORAL TABLET)
     Route: 048
  19. FERROUS FUMARATE [Concomitant]
     Active Substance: FERROUS FUMARATE
     Indication: Product used for unknown indication
     Dosage: (FERRETTS IRON 325 MG (106 MG ELEMENTAL IRON) ORAL TABLET)
     Route: 048
  20. PREGABALIN [Concomitant]
     Active Substance: PREGABALIN
     Indication: Product used for unknown indication
     Dosage: (LYRICA 100 MG ORAL CAPSULE)
     Route: 048
  21. FLUTICASONE [Concomitant]
     Active Substance: FLUTICASONE
     Indication: Product used for unknown indication
     Dosage: FLUTICASONE NASAL (FLUTICASONE 50 MCG/INH NASAL SPRAY)

REACTIONS (2)
  - Embolic stroke [Fatal]
  - Hospitalisation [Unknown]

NARRATIVE: CASE EVENT DATE: 20240301
